FAERS Safety Report 4871843-5 (Version None)
Quarter: 2006Q1

REPORT INFORMATION
  Report Type: 
  Country: None (occurrence: None)
  Receive Date: 20060104
  Receipt Date: 20051005
  Transmission Date: 20060701
  Serious: Yes (Hospitalization)
  Sender: FDA-Public Use
  Company Number: US-MERCK-0510USA04135

PATIENT
  Age: 75 Year
  Sex: Male
  Weight: 82 kg

DRUGS (8)
  1. VIOXX [Suspect]
     Indication: ARTHRITIS
     Route: 048
     Dates: start: 19990101
  2. METHOTREXATE [Concomitant]
     Route: 048
  3. FOLIC ACID [Concomitant]
     Route: 048
  4. LANOXIN [Concomitant]
     Route: 048
  5. ZOCOR [Concomitant]
     Route: 048
  6. SYNTHROID [Concomitant]
     Indication: HYPOTHYROIDISM
     Route: 048
  7. COUMADIN [Concomitant]
     Indication: ATRIAL FLUTTER
     Route: 048
  8. ADALAT [Concomitant]
     Route: 048

REACTIONS (5)
  - ATRIAL FIBRILLATION [None]
  - CARDIAC DISORDER [None]
  - HERNIA [None]
  - IMPLANT SITE HAEMATOMA [None]
  - VENTRICULAR TACHYCARDIA [None]
